FAERS Safety Report 12797837 (Version 1)
Quarter: 2016Q3

REPORT INFORMATION
  Report Type: Spontaneous
  Country: US (occurrence: US)
  Receive Date: 20160930
  Receipt Date: 20160930
  Transmission Date: 20161109
  Serious: Yes (Hospitalization, Other)
  Sender: FDA-Public Use
  Company Number: US-GLAXOSMITHKLINE-US2016142485

PATIENT
  Age: 53 Year
  Sex: Female

DRUGS (1)
  1. LOVAZA [Suspect]
     Active Substance: OMEGA-3-ACID ETHYL ESTERS
     Indication: PRODUCT USED FOR UNKNOWN INDICATION
     Dosage: UNK

REACTIONS (7)
  - Thrombosis [Recovered/Resolved]
  - Fracture [Recovered/Resolved]
  - Back pain [Not Recovered/Not Resolved]
  - Knee operation [Recovered/Resolved]
  - Spinal operation [Unknown]
  - Fall [Recovered/Resolved with Sequelae]
  - Pain in extremity [Not Recovered/Not Resolved]

NARRATIVE: CASE EVENT DATE: 201501
